FAERS Safety Report 26007515 (Version 1)
Quarter: 2025Q4

REPORT INFORMATION
  Report Type: Report from Study
  Country: IL (occurrence: IL)
  Receive Date: 20251106
  Receipt Date: 20251106
  Transmission Date: 20260118
  Serious: Yes (Other)
  Sender: TAKEDA
  Company Number: IL-TAKEDA-2025TUS095132

PATIENT

DRUGS (4)
  1. RECOMBINATE [Suspect]
     Active Substance: ANTIHEMOPHILIC FACTOR, HUMAN RECOMBINANT
     Indication: Factor VIII deficiency
     Dosage: UNK
  2. EMICIZUMAB [Concomitant]
     Active Substance: EMICIZUMAB
     Dosage: 3 MILLIGRAM/KILOGRAM, 1/WEEK
  3. EMICIZUMAB [Concomitant]
     Active Substance: EMICIZUMAB
     Dosage: 1.5 MILLIGRAM/KILOGRAM, 1/WEEK
  4. EMICIZUMAB [Concomitant]
     Active Substance: EMICIZUMAB
     Dosage: 3 MILLIGRAM/KILOGRAM, Q2WEEKS

REACTIONS (1)
  - Anti factor VIII antibody positive [Unknown]
